FAERS Safety Report 22982417 (Version 7)
Quarter: 2024Q3

REPORT INFORMATION
  Report Type: Report from Study
  Country: US (occurrence: US)
  Receive Date: 20230926
  Receipt Date: 20240701
  Transmission Date: 20241017
  Serious: Yes (Hospitalization, Other)
  Sender: ACADIA PHARMACEUTICALS
  Company Number: US-ACADIA PHARMACEUTICALS INC.-ACA-2023-TRF-003873

PATIENT
  Age: 4 Year
  Sex: Female

DRUGS (3)
  1. DAYBUE [Suspect]
     Active Substance: TROFINETIDE
     Indication: Rett syndrome
     Dosage: 30 MILLILITER, BID
     Route: 048
     Dates: start: 20230812, end: 20231116
  2. DAYBUE [Suspect]
     Active Substance: TROFINETIDE
     Dosage: 30 MILLILITRE,BID
     Route: 048
  3. KEPPRA [Suspect]
     Active Substance: LEVETIRACETAM
     Indication: Seizure
     Route: 065

REACTIONS (16)
  - Insomnia [Not Recovered/Not Resolved]
  - Illness [Unknown]
  - Seizure [Unknown]
  - Precocious puberty [Not Recovered/Not Resolved]
  - Asthenia [Unknown]
  - Irritability [Unknown]
  - Diarrhoea [Not Recovered/Not Resolved]
  - Vomiting [Not Recovered/Not Resolved]
  - Diarrhoea [Not Recovered/Not Resolved]
  - Vomiting [Not Recovered/Not Resolved]
  - Vomiting [Unknown]
  - Vomiting [Unknown]
  - Diarrhoea [Not Recovered/Not Resolved]
  - Vomiting [Not Recovered/Not Resolved]
  - Diarrhoea [Not Recovered/Not Resolved]
  - Fatigue [Unknown]

NARRATIVE: CASE EVENT DATE: 20231201
